FAERS Safety Report 6680035-9 (Version None)
Quarter: 2010Q2

REPORT INFORMATION
  Report Type: 
  Country: None (occurrence: None)
  Receive Date: 20100413
  Receipt Date: 20100331
  Transmission Date: 20101027
  Serious: Yes (Hospitalization, Other)
  Sender: FDA-Public Use
  Company Number: US-WATSON-2010-04409

PATIENT
  Age: 74 Year
  Sex: Female

DRUGS (3)
  1. METFORMIN HCL [Suspect]
     Indication: DIABETES MELLITUS
     Dosage: 1000 MG, BID
     Route: 048
     Dates: start: 20050101, end: 20100201
  2. AMARYL [Suspect]
     Indication: DIABETES MELLITUS
     Dosage: 4 MG, BID
     Route: 048
  3. ANTIHYPERTENSIVES [Suspect]
     Indication: BLOOD PRESSURE
     Dosage: UNK
     Route: 065

REACTIONS (9)
  - ACUTE MYOCARDIAL INFARCTION [None]
  - ARTERIOSCLEROSIS [None]
  - CARDIAC ARREST [None]
  - CHEST DISCOMFORT [None]
  - CORONARY ARTERY OCCLUSION [None]
  - DYSPNOEA [None]
  - EJECTION FRACTION DECREASED [None]
  - EMBOLISM [None]
  - WEIGHT INCREASED [None]
